FAERS Safety Report 5085180-X (Version None)
Quarter: 2006Q3

REPORT INFORMATION
  Report Type: 
  Country: None (occurrence: None)
  Receive Date: 20060817
  Receipt Date: 20060811
  Transmission Date: 20061208
  Serious: Yes (Other)
  Sender: FDA-Public Use
  Company Number: 0104-2861

PATIENT
  Age: 73 Year
  Sex: Female
  Weight: 109.7705 kg

DRUGS (5)
  1. ADVICOR [Suspect]
     Dosage: 1 TABLET(S) QPM PO
     Route: 048
     Dates: start: 20060401, end: 20060401
  2. LISINOPRIL W/HYDROCHLOROTHIAZIDE [Concomitant]
  3. ECOTRIN [Concomitant]
  4. DETROL LA [Concomitant]
  5. CELEBREX [Concomitant]

REACTIONS (1)
  - CONVULSION [None]
